FAERS Safety Report 9540755 (Version 1)
Quarter: 2013Q3

REPORT INFORMATION
  Report Type: Spontaneous
  Country: BR (occurrence: BR)
  Receive Date: 20130920
  Receipt Date: 20130920
  Transmission Date: 20140515
  Serious: Yes (Other)
  Sender: FDA-Public Use
  Company Number: BR-ASTRAZENECA-2013SE69689

PATIENT
  Age: 78 Year
  Sex: Female
  Weight: 60 kg

DRUGS (4)
  1. CRESTOR [Suspect]
     Indication: BLOOD CHOLESTEROL INCREASED
     Route: 048
     Dates: start: 2001
  2. MANIVASC [Concomitant]
     Indication: HYPERTENSION
     Dates: start: 2001
  3. ARADOIS [Concomitant]
     Indication: HYPERTENSION
     Dates: start: 2001
  4. GLIFAGE [Concomitant]
     Indication: BLOOD GLUCOSE INCREASED

REACTIONS (2)
  - Cataract [Recovered/Resolved]
  - Cataract [Recovered/Resolved]
